FAERS Safety Report 13350605 (Version 1)
Quarter: 2017Q1

REPORT INFORMATION
  Report Type: Report from Study
  Country: BR (occurrence: BR)
  Receive Date: 20170320
  Receipt Date: 20170320
  Transmission Date: 20170429
  Serious: Yes (Death)
  Sender: FDA-Public Use
  Company Number: PHHY2017BR041776

PATIENT
  Sex: Male
  Weight: 70 kg

DRUGS (3)
  1. EXELON PATCH [Suspect]
     Active Substance: RIVASTIGMINE
     Dosage: 13.3 MG, QD PATCH 15 (CM2)
     Route: 062
  2. EXELON PATCH [Suspect]
     Active Substance: RIVASTIGMINE
     Dosage: 9.5 MG, QD PATCH 10 (CM2)
     Route: 062
  3. EXELON PATCH [Suspect]
     Active Substance: RIVASTIGMINE
     Indication: DEMENTIA ALZHEIMER^S TYPE
     Dosage: 9.5 MG, QD PATCH 10 (CM2)
     Route: 062
     Dates: start: 2009, end: 201612

REACTIONS (7)
  - Pulmonary sepsis [Fatal]
  - Parkinson^s disease [Fatal]
  - Drug intolerance [Unknown]
  - Dementia Alzheimer^s type [Fatal]
  - Weight decreased [Unknown]
  - Decreased appetite [Unknown]
  - Respiratory tract infection [Fatal]
